FAERS Safety Report 18004885 (Version 1)
Quarter: 2020Q3

REPORT INFORMATION
  Report Type: Spontaneous
  Country: US (occurrence: US)
  Receive Date: 20200709
  Receipt Date: 20200709
  Transmission Date: 20201103
  Serious: No
  Sender: FDA-Public Use
  Company Number: US-PFIZER INC-2020263095

PATIENT
  Sex: Male

DRUGS (2)
  1. TIKOSYN [Suspect]
     Active Substance: DOFETILIDE
     Dosage: UNK
  2. ALPHA?GALACTOSIDASE [Suspect]
     Active Substance: AGALSIDASE BETA
     Dosage: UNK

REACTIONS (2)
  - Pruritus [Unknown]
  - Food allergy [Unknown]
